FAERS Safety Report 21421516 (Version 4)
Quarter: 2023Q1

REPORT INFORMATION
  Report Type: Report from Study
  Country: US (occurrence: US)
  Receive Date: 20221007
  Receipt Date: 20230104
  Transmission Date: 20230417
  Serious: Yes (Other)
  Sender: FDA-Public Use
  Company Number: US-TAIHO-2022-000030

PATIENT
  Sex: Male
  Weight: 59.42 kg

DRUGS (4)
  1. LONSURF [Suspect]
     Active Substance: TIPIRACIL HYDROCHLORIDE\TRIFLURIDINE
     Indication: Rectosigmoid cancer
     Dosage: CURRENT CYCLE UNKNOWN
     Route: 048
     Dates: start: 202206
  2. LONSURF [Suspect]
     Active Substance: TIPIRACIL HYDROCHLORIDE\TRIFLURIDINE
     Dosage: CURRENT CYCLE UNKNOWN
     Route: 048
  3. GLIPIZIDE [Suspect]
     Active Substance: GLIPIZIDE
     Indication: Product used for unknown indication
  4. GLIPIZIDE [Suspect]
     Active Substance: GLIPIZIDE
     Dosage: EVERY OTHER DAY

REACTIONS (6)
  - Hypertension [Unknown]
  - Pulmonary haemorrhage [Unknown]
  - Blood glucose decreased [Unknown]
  - Red blood cell count decreased [Unknown]
  - White blood cell count decreased [Unknown]
  - Disease progression [Unknown]
